FAERS Safety Report 24981732 (Version 5)
Quarter: 2025Q4

REPORT INFORMATION
  Report Type: Spontaneous
  Country: JP (occurrence: JP)
  Receive Date: 20250218
  Receipt Date: 20251127
  Transmission Date: 20260117
  Serious: Yes (Death, Hospitalization, Other)
  Sender: MERCK SHARP & DOHME LLC
  Company Number: JP-009507513-2255812

PATIENT
  Age: 62 Year
  Sex: Male

DRUGS (2)
  1. KEYTRUDA [Suspect]
     Active Substance: PEMBROLIZUMAB
     Indication: Clear cell renal cell carcinoma
     Dosage: 200 MG, EVERY 3 WEEKS (Q3W)
     Route: 041
     Dates: start: 20250101
  2. LENVATINIB MESYLATE [Suspect]
     Active Substance: LENVATINIB MESYLATE
     Indication: Clear cell renal cell carcinoma
     Dosage: 14 MG, QD
     Route: 048
     Dates: start: 20250101, end: 20250114

REACTIONS (7)
  - Death [Fatal]
  - Delirium [Unknown]
  - Oxygen saturation decreased [Unknown]
  - Jaundice [Unknown]
  - Diarrhoea [Unknown]
  - Depressed level of consciousness [Not Recovered/Not Resolved]
  - Vomiting [Unknown]

NARRATIVE: CASE EVENT DATE: 20250114
